FAERS Safety Report 15359304 (Version 1)
Quarter: 2018Q3

REPORT INFORMATION
  Report Type: Spontaneous
  Country: US (occurrence: US)
  Receive Date: 20180907
  Receipt Date: 20180907
  Transmission Date: 20181010
  Serious: No
  Sender: FDA-Public Use
  Company Number: US-TEVA-2018-US-950758

PATIENT
  Age: 39 Year
  Sex: Female

DRUGS (7)
  1. SOMA [Concomitant]
     Active Substance: CARISOPRODOL
  2. ZONISAMIDE. [Concomitant]
     Active Substance: ZONISAMIDE
  3. IBUPROFEN. [Concomitant]
     Active Substance: IBUPROFEN
  4. CLONAZEPAM. [Concomitant]
     Active Substance: CLONAZEPAM
  5. FLURAZEPAM [Concomitant]
     Active Substance: FLURAZEPAM\FLURAZEPAM HYDROCHLORIDE
  6. ACTIQ [Suspect]
     Active Substance: FENTANYL CITRATE
     Indication: PAIN
     Dosage: 800 MICROGRAM DAILY;
     Route: 065
  7. DOCUSATE [Concomitant]
     Active Substance: DOCUSATE

REACTIONS (1)
  - Withdrawal syndrome [Unknown]

NARRATIVE: CASE EVENT DATE: 20180830
